FAERS Safety Report 13683907 (Version 8)
Quarter: 2017Q3

REPORT INFORMATION
  Report Type: Spontaneous
  Country: US (occurrence: US)
  Receive Date: 20170623
  Receipt Date: 20170810
  Transmission Date: 20171127
  Serious: Yes (Hospitalization, Other)
  Sender: FDA-Public Use
  Company Number: US-PFIZER INC-2017267103

PATIENT
  Age: 53 Year
  Sex: Male
  Weight: 70.75 kg

DRUGS (3)
  1. STOOL SOFTENER (DOCUSATE) [Concomitant]
     Active Substance: DOCUSATE
     Dosage: UNK
  2. SUTENT [Suspect]
     Active Substance: SUNITINIB MALATE
     Indication: RENAL CANCER METASTATIC
     Dosage: 50 MG, CYCLIC (2 WEEKS ON/1 WEEK OFF, EVERY 21 DAYS)
     Route: 048
     Dates: start: 20170613
  3. SUTENT [Suspect]
     Active Substance: SUNITINIB MALATE
     Dosage: 50 MG, CYCLIC; (D 1-14Q 21DAYS)
     Route: 048
     Dates: start: 20170613

REACTIONS (16)
  - Paraesthesia oral [Unknown]
  - Back pain [Not Recovered/Not Resolved]
  - Haemoptysis [Unknown]
  - Restlessness [Unknown]
  - Abdominal pain upper [Not Recovered/Not Resolved]
  - Chest discomfort [Unknown]
  - Discomfort [Unknown]
  - Dyspnoea [Unknown]
  - Pancreatitis [Unknown]
  - Fatigue [Unknown]
  - Dysuria [Unknown]
  - Pain [Not Recovered/Not Resolved]
  - Insomnia [Unknown]
  - Nausea [Unknown]
  - Chest pain [Unknown]
  - Neoplasm progression [Unknown]

NARRATIVE: CASE EVENT DATE: 201706
